FAERS Safety Report 22103240 (Version 1)
Quarter: 2023Q1

REPORT INFORMATION
  Report Type: Spontaneous
  Country: AT (occurrence: AT)
  Receive Date: 20230316
  Receipt Date: 20230316
  Transmission Date: 20230418
  Serious: Yes (Other)
  Sender: FDA-Public Use
  Company Number: AT-009507513-2303AUT004313

PATIENT
  Age: 56 Year
  Sex: Female
  Weight: 57 kg

DRUGS (4)
  1. KEYTRUDA [Suspect]
     Active Substance: PEMBROLIZUMAB
     Dosage: UNK
     Dates: start: 201905, end: 201908
  2. KEYTRUDA [Suspect]
     Active Substance: PEMBROLIZUMAB
     Dosage: UNK
     Dates: start: 201909
  3. CARBOPLATIN [Suspect]
     Active Substance: CARBOPLATIN
     Dosage: UNK
     Dates: start: 201905, end: 201908
  4. ABRAXANE [Suspect]
     Active Substance: PACLITAXEL
     Dosage: UNK
     Dates: start: 201905, end: 201908

REACTIONS (5)
  - Pancytopenia [Unknown]
  - Aortic thrombosis [Unknown]
  - Malignant neoplasm progression [Recovered/Resolved]
  - Thrombocytopenia [Unknown]
  - Aortic embolus [Unknown]

NARRATIVE: CASE EVENT DATE: 20220401
